FAERS Safety Report 6254759-1 (Version None)
Quarter: 2009Q3

REPORT INFORMATION
  Report Type: 
  Country: None (occurrence: None)
  Receive Date: 20090702
  Receipt Date: 20090624
  Transmission Date: 20100115
  Serious: Yes (Other)
  Sender: FDA-Public Use
  Company Number: BR-ELI_LILLY_AND_COMPANY-BR200906002329

PATIENT
  Sex: Female
  Weight: 41 kg

DRUGS (5)
  1. FORTEO [Suspect]
     Indication: OSTEOPOROSIS
     Dosage: 20 UG, DAILY (1/D)
     Route: 058
     Dates: start: 20090520
  2. ATENOLOL [Concomitant]
     Indication: BLOOD PRESSURE
     Dosage: UNK, UNKNOWN
     Route: 065
  3. CAPTOPRIL [Concomitant]
     Indication: BLOOD PRESSURE
     Dosage: UNK, UNKNOWN
     Route: 065
  4. OMEPRAZOL [Concomitant]
     Indication: GASTRIC DISORDER
     Dosage: UNK, UNKNOWN
     Route: 065
  5. BROMAZEPAM [Concomitant]
     Indication: AGITATION
     Dosage: UNK, EACH EVENING
     Route: 065

REACTIONS (6)
  - BLINDNESS [None]
  - BONE DISORDER [None]
  - HYPOAESTHESIA [None]
  - LIMB DISCOMFORT [None]
  - MUSCULAR WEAKNESS [None]
  - TREMOR [None]
